FAERS Safety Report 10503649 (Version 1)
Quarter: 2014Q4

REPORT INFORMATION
  Report Type: Spontaneous
  Country: US (occurrence: None)
  Receive Date: 20141007
  Receipt Date: 20141007
  Transmission Date: 20150528
  Serious: Yes (Hospitalization, Disabling)
  Sender: FDA-Public Use
  Company Number: None

PATIENT
  Age: 51 Year
  Sex: Female
  Weight: 45.81 kg

DRUGS (8)
  1. BETAMETHASONE [Concomitant]
     Active Substance: BETAMETHASONE
  2. BOTULINUM TOXIN TYPE A [Suspect]
     Active Substance: BOTULINUM TOXIN TYPE A
     Indication: TORTICOLLIS
     Dosage: CONTACT SCOTT + WHITE, 100 UNITS, ONCE EVERY 3 MONTHS, BY INJECTION
     Dates: start: 20140701, end: 20140701
  3. CLONAZEPAM. [Concomitant]
     Active Substance: CLONAZEPAM
  4. ACETAMINOPHEN. [Concomitant]
     Active Substance: ACETAMINOPHEN
  5. CETIRIZINE [Concomitant]
     Active Substance: CETIRIZINE HYDROCHLORIDE
  6. GABAPENTIN. [Concomitant]
     Active Substance: GABAPENTIN
  7. BIRTH CONTROL PILLS [Concomitant]
     Active Substance: UNSPECIFIED INGREDIENT
  8. LEVOTHYROXINE [Concomitant]
     Active Substance: LEVOTHYROXINE

REACTIONS (13)
  - Chills [None]
  - Musculoskeletal stiffness [None]
  - Pain [None]
  - Gait disturbance [None]
  - Myalgia [None]
  - Pyrexia [None]
  - Weight decreased [None]
  - Musculoskeletal pain [None]
  - Impaired driving ability [None]
  - Dizziness [None]
  - Neck pain [None]
  - Headache [None]
  - Impaired work ability [None]

NARRATIVE: CASE EVENT DATE: 20140701
